FAERS Safety Report 4471377-6 (Version None)
Quarter: 2004Q4

REPORT INFORMATION
  Report Type: 
  Country: None (occurrence: None)
  Receive Date: 20041006
  Receipt Date: 20040924
  Transmission Date: 20050328
  Serious: Yes (Other)
  Sender: FDA-Public Use
  Company Number: US-GDP-0411395

PATIENT
  Age: 47 Hour
  Sex: Female

DRUGS (13)
  1. CLOBEX [Suspect]
     Indication: SKIN LESION
     Dosage: 1 APP ONCE TP
     Route: 061
     Dates: start: 20040910, end: 20040910
  2. DIOVAN [Concomitant]
  3. CENESTIN [Concomitant]
  4. TRAZODONE HCL [Concomitant]
  5. PREVACID [Concomitant]
  6. LASIX [Concomitant]
  7. METHOTREXATE [Concomitant]
  8. NORCO [Concomitant]
  9. MIACALCIN [Concomitant]
  10. MIRALAX [Concomitant]
  11. CLARITIN [Concomitant]
  12. VALIUM [Concomitant]
  13. FOLIC ACID [Concomitant]

REACTIONS (11)
  - BLOOD PRESSURE DIASTOLIC INCREASED [None]
  - BODY TINEA [None]
  - CHEST PAIN [None]
  - DYSPNOEA [None]
  - FEELING ABNORMAL [None]
  - HEADACHE [None]
  - HYPERSENSITIVITY [None]
  - MUSCULOSKELETAL STIFFNESS [None]
  - NAUSEA [None]
  - PRURITUS [None]
  - SKIN LESION [None]
